FAERS Safety Report 7629292-2 (Version None)
Quarter: 2011Q3

REPORT INFORMATION
  Report Type: 
  Country: None (occurrence: None)
  Receive Date: 20110722
  Receipt Date: 20110713
  Transmission Date: 20111222
  Serious: Yes (Hospitalization)
  Sender: FDA-Public Use
  Company Number: CA-SANOFI-AVENTIS-2011SA015257

PATIENT
  Age: 86 Year
  Sex: Female
  Weight: 50 kg

DRUGS (2)
  1. PLAVIX [Suspect]
     Indication: STENT PLACEMENT
     Route: 048
     Dates: start: 20050101
  2. PLAVIX [Suspect]

REACTIONS (20)
  - RENAL FAILURE [None]
  - DEMENTIA [None]
  - CONTUSION [None]
  - CONSTIPATION [None]
  - SYNCOPE [None]
  - URINARY TRACT INFECTION [None]
  - DECREASED APPETITE [None]
  - SENSORY DISTURBANCE [None]
  - OCULAR ICTERUS [None]
  - GASTROINTESTINAL HAEMORRHAGE [None]
  - MUSCULAR WEAKNESS [None]
  - ARTHRALGIA [None]
  - DYSARTHRIA [None]
  - BONE LOSS [None]
  - RASH [None]
  - CONFUSIONAL STATE [None]
  - TOOTH LOSS [None]
  - FAECES DISCOLOURED [None]
  - BLOOD CREATININE INCREASED [None]
  - BLOOD URINE PRESENT [None]
